FAERS Safety Report 18782352 (Version 1)
Quarter: 2021Q1

REPORT INFORMATION
  Report Type: Spontaneous
  Country: US (occurrence: US)
  Receive Date: 20210125
  Receipt Date: 20210125
  Transmission Date: 20210419
  Serious: No
  Sender: FDA-Public Use
  Company Number: US-COVIS PHARMA B.V.-2020COV00198

PATIENT
  Sex: Female
  Weight: 54.42 kg

DRUGS (10)
  1. TIZANIDINE (APOTEX) [Suspect]
     Active Substance: TIZANIDINE HYDROCHLORIDE
     Indication: MULTIPLE SCLEROSIS
     Dosage: 4 MG, 1X/DAY AT NIGHT
     Route: 048
     Dates: start: 20200211
  2. TIZANIDINE HYDROCHLORIDE. [Suspect]
     Active Substance: TIZANIDINE HYDROCHLORIDE
     Indication: MUSCLE SPASTICITY
     Dosage: 2 MG, AS NEEDED DURING THE DAY
     Dates: end: 20200210
  3. TIZANIDINE (APOTEX) [Suspect]
     Active Substance: TIZANIDINE HYDROCHLORIDE
     Indication: MUSCLE SPASTICITY
     Dosage: 1 MG, DURING THE DAY AS NEEDED
     Route: 048
     Dates: start: 20200211
  4. TIZANIDINE HYDROCHLORIDE. [Suspect]
     Active Substance: TIZANIDINE HYDROCHLORIDE
     Indication: MUSCLE TIGHTNESS
     Dosage: 1 MG, AS NEEDED DURING THE DAY
     Dates: end: 20200210
  5. TIZANIDINE (APOTEX) [Suspect]
     Active Substance: TIZANIDINE HYDROCHLORIDE
     Indication: MUSCLE TIGHTNESS
  6. FLEXERIL [Suspect]
     Active Substance: CYCLOBENZAPRINE HYDROCHLORIDE
     Dosage: UNK
  7. LISINOPRIL. [Concomitant]
     Active Substance: LISINOPRIL
     Dosage: UNK MG
  8. MUCINEX [Concomitant]
     Active Substance: GUAIFENESIN
  9. TIZANIDINE HYDROCHLORIDE. [Suspect]
     Active Substance: TIZANIDINE HYDROCHLORIDE
     Indication: MULTIPLE SCLEROSIS
     Dosage: UNK, 1X/DAY AT NIGHT
     Route: 048
     Dates: end: 20200210
  10. METOPROLOL. [Concomitant]
     Active Substance: METOPROLOL

REACTIONS (4)
  - Gait disturbance [Unknown]
  - Food interaction [Not Recovered/Not Resolved]
  - Somnolence [Not Recovered/Not Resolved]
  - Fatigue [Not Recovered/Not Resolved]

NARRATIVE: CASE EVENT DATE: 2020
